FAERS Safety Report 7821818-9 (Version None)
Quarter: 2011Q4

REPORT INFORMATION
  Report Type: 
  Country: None (occurrence: None)
  Receive Date: 20111018
  Receipt Date: 20100805
  Transmission Date: 20120403
  Serious: No
  Sender: FDA-Public Use
  Company Number: GB-ASTRAZENECA-2010SE30140

PATIENT
  Sex: Female

DRUGS (3)
  1. SYMBICORT [Suspect]
     Indication: ASTHMA
     Dosage: 80 MCG ONE PUFF TWO TIMES A DAY
     Route: 055
     Dates: start: 20100625
  2. ZANTAC [Concomitant]
  3. ALBUTEROL [Concomitant]
     Indication: ASTHMA
     Dosage: TWO PUFFS ONE TO TWO TIMES A WEEK
     Route: 055

REACTIONS (5)
  - FOOD POISONING [None]
  - HEART RATE INCREASED [None]
  - DYSPNOEA [None]
  - PAIN IN EXTREMITY [None]
  - FEELING HOT [None]
